FAERS Safety Report 6300104-2 (Version None)
Quarter: 2009Q3

REPORT INFORMATION
  Report Type: 
  Country: None (occurrence: None)
  Receive Date: 20090805
  Receipt Date: 20090805
  Transmission Date: 20100115
  Serious: Yes (Death, Hospitalization)
  Sender: FDA-Public Use
  Company Number: None

PATIENT
  Sex: Female
  Weight: 76 kg

DRUGS (2)
  1. CYTARABINE [Suspect]
     Dosage: 1440 MG
     Dates: end: 20090715
  2. DAUNORUBICIN HCL [Suspect]
     Dosage: 330 MG
     Dates: end: 20090710

REACTIONS (7)
  - ACIDOSIS [None]
  - BACTERIAL INFECTION [None]
  - BLOOD CULTURE POSITIVE [None]
  - BRONCHOALVEOLAR LAVAGE ABNORMAL [None]
  - FEBRILE NEUTROPENIA [None]
  - PSEUDOMONAS INFECTION [None]
  - SEPTIC SHOCK [None]
